FAERS Safety Report 8134201-6 (Version None)
Quarter: 2012Q1

REPORT INFORMATION
  Report Type: 
  Country: None (occurrence: None)
  Receive Date: 20120209
  Receipt Date: 20120124
  Transmission Date: 20120608
  Serious: Yes (Death, Life-Threatening)
  Sender: FDA-Public Use
  Company Number: FK201200238

PATIENT
  Age: 54 Year
  Sex: Male

DRUGS (5)
  1. PYRIMETHAMINE TAB [Suspect]
     Indication: TOXOPLASMOSIS
  2. CLINDAMYCIN [Suspect]
     Indication: TOXOPLASMOSIS
  3. DAPSONE [Suspect]
     Indication: PNEUMOCYSTIS JIROVECI PNEUMONIA
  4. DEXAMETHASONE [Concomitant]
  5. INSULIN (INSULIN) [Concomitant]

REACTIONS (6)
  - PANCYTOPENIA [None]
  - HAEMODYNAMIC INSTABILITY [None]
  - RESPIRATORY DEPRESSION [None]
  - MENTAL IMPAIRMENT [None]
  - ZYGOMYCOSIS [None]
  - TOXICITY TO VARIOUS AGENTS [None]
